FAERS Safety Report 9837013 (Version 1)
Quarter: 2014Q1

REPORT INFORMATION
  Report Type: Spontaneous
  Country: GB (occurrence: GB)
  Receive Date: 20140123
  Receipt Date: 20140123
  Transmission Date: 20141002
  Serious: Yes (Other)
  Sender: FDA-Public Use
  Company Number: GB-ACCORD-021317

PATIENT
  Age: 29 Year
  Sex: Female

DRUGS (4)
  1. DOCETAXEL [Suspect]
     Indication: ADJUVANT THERAPY
     Route: 042
  2. HERCEPTIN [Suspect]
     Indication: ADJUVANT THERAPY
     Dosage: 8 MG/KG LOADING DOSE, THEN 6MG/KG
     Route: 042
  3. DEXAMETHASONE [Concomitant]
     Indication: HYPERSENSITIVITY
  4. ONDANSETRON [Concomitant]

REACTIONS (2)
  - No therapeutic response [Unknown]
  - Neoplasm progression [Not Recovered/Not Resolved]
